FAERS Safety Report 5002152-1 (Version None)
Quarter: 2006Q2

REPORT INFORMATION
  Report Type: 
  Country: None (occurrence: None)
  Receive Date: 20060515
  Receipt Date: 20060207
  Transmission Date: 20061013
  Serious: Yes (Hospitalization)
  Sender: FDA-Public Use
  Company Number: 2006AP00654

PATIENT
  Age: 24827 Day
  Sex: Male
  Weight: 73 kg

DRUGS (4)
  1. IRESSA [Suspect]
     Indication: METASTASES TO CENTRAL NERVOUS SYSTEM
     Route: 048
     Dates: start: 20051209, end: 20060206
  2. SOLDESAM [Concomitant]
     Indication: PROPHYLAXIS
     Dosage: STARTED PRE SCREENING
     Route: 048
  3. BRONCOVALEAS [Concomitant]
     Indication: COUGH
     Dosage: STARTED PRE SCREENING
  4. FLUIMUCIL [Concomitant]
     Indication: COUGH
     Dates: start: 20051222

REACTIONS (4)
  - DIARRHOEA [None]
  - DISEASE PROGRESSION [None]
  - MALAISE [None]
  - VOMITING [None]
